FAERS Safety Report 8238268-6 (Version None)
Quarter: 2012Q1

REPORT INFORMATION
  Report Type: 
  Country: None (occurrence: None)
  Receive Date: 20120326
  Receipt Date: 20120309
  Transmission Date: 20120608
  Serious: Yes (Hospitalization)
  Sender: FDA-Public Use
  Company Number: HRA-CDB20120053

PATIENT
  Sex: Female

DRUGS (1)
  1. ELLAONE (ULIPRISTAL ACETATE) [Suspect]
     Indication: CONTRACEPTION
     Dosage: 30 MG (30 MG,1 IN 1 D)
     Dates: start: 20120220, end: 20120220

REACTIONS (7)
  - VOMITING [None]
  - PAIN [None]
  - URINARY TRACT INFECTION [None]
  - HOT FLUSH [None]
  - VIRAL INFECTION [None]
  - ABDOMINAL PAIN UPPER [None]
  - COSTOVERTEBRAL ANGLE TENDERNESS [None]
